FAERS Safety Report 4854199-3 (Version None)
Quarter: 2005Q4

REPORT INFORMATION
  Report Type: 
  Country: None (occurrence: None)
  Receive Date: 20051213
  Receipt Date: 20051130
  Transmission Date: 20060501
  Serious: Yes (Hospitalization, Other)
  Sender: FDA-Public Use
  Company Number: 2005162988

PATIENT
  Sex: Female

DRUGS (1)
  1. DETROL LA [Suspect]
     Indication: INCONTINENCE
     Dosage: 4MG (4 MG, 1 IN 1 D),
     Dates: start: 20050101

REACTIONS (3)
  - DEMENTIA [None]
  - HYDROCEPHALUS [None]
  - INCORRECT DOSE ADMINISTERED [None]
